FAERS Safety Report 5216123-3 (Version None)
Quarter: 2007Q1

REPORT INFORMATION
  Report Type: 
  Country: None (occurrence: None)
  Receive Date: 20070123
  Receipt Date: 20070104
  Transmission Date: 20070707
  Serious: Yes (Death)
  Sender: FDA-Public Use
  Company Number: US-BRISTOL-MYERS SQUIBB COMPANY-13632138

PATIENT
  Age: 72 Year
  Sex: Female

DRUGS (9)
  1. GLUCOPHAGE [Suspect]
     Indication: DIABETES MELLITUS
  2. CAPTOPRIL [Concomitant]
  3. SPIRONOLACTONE [Concomitant]
  4. ATENOLOL [Concomitant]
  5. DIGOXIN [Concomitant]
  6. LIPITOR [Concomitant]
  7. GLUCOTROL [Concomitant]
  8. SYNTHROID [Concomitant]
  9. DEMADEX [Concomitant]

REACTIONS (1)
  - CEREBROVASCULAR ACCIDENT [None]
